FAERS Safety Report 21897642 (Version 2)
Quarter: 2023Q1

REPORT INFORMATION
  Report Type: Report from Study
  Country: US (occurrence: US)
  Receive Date: 20230123
  Receipt Date: 20230125
  Transmission Date: 20230417
  Serious: No
  Sender: FDA-Public Use
  Company Number: US-002147023-NVSC2022US296030

PATIENT
  Sex: Male

DRUGS (1)
  1. ENTRESTO [Suspect]
     Active Substance: SACUBITRIL\VALSARTAN
     Indication: Left ventricular failure
     Dosage: 1 DOSAGE FORM, QD (24/26 MG)
     Route: 065
     Dates: start: 202203

REACTIONS (2)
  - Inappropriate schedule of product administration [Unknown]
  - Underdose [Unknown]
